FAERS Safety Report 9663022 (Version 3)
Quarter: 2014Q2

REPORT INFORMATION
  Report Type: Spontaneous
  Country: US (occurrence: US)
  Receive Date: 20131031
  Receipt Date: 20140418
  Transmission Date: 20141212
  Serious: No
  Sender: FDA-Public Use
  Company Number: US-PURDUE-USA-2010-0047619

PATIENT
  Age: 40 Year
  Sex: Male

DRUGS (3)
  1. OXYCONTIN (NDA 22-272) [Suspect]
     Indication: PAIN
     Dosage: 240 MG, AM
     Dates: start: 201008
  2. OXYCONTIN (NDA 22-272) [Suspect]
     Dosage: 240 MG,AFTERNOON
     Dates: start: 201008
  3. OXYCONTIN (NDA 22-272) [Suspect]
     Dosage: 160 MG, PM
     Dates: start: 201008

REACTIONS (5)
  - Poor quality sleep [Unknown]
  - Inadequate analgesia [Unknown]
  - Nausea [Unknown]
  - Drug effect decreased [Not Recovered/Not Resolved]
  - Drug ineffective [Unknown]
